FAERS Safety Report 4587112-7 (Version None)
Quarter: 2005Q1

REPORT INFORMATION
  Report Type: 
  Country: None (occurrence: None)
  Receive Date: 20050215
  Receipt Date: 20041130
  Transmission Date: 20050727
  Serious: Yes (Other)
  Sender: FDA-Public Use
  Company Number: 2004104527

PATIENT
  Age: 62 Year
  Sex: Female

DRUGS (3)
  1. BEXTRA [Suspect]
     Indication: ILL-DEFINED DISORDER
     Dosage: 10 MG
     Dates: start: 20020901, end: 20041118
  2. ANTIFLAMMATORY/ANTIRHEUMATIC NON-STEROIDS) (ANTIFLAMMATORY/ANTIRHEUMAT [Suspect]
     Indication: ILL-DEFINED DISORDER
  3. ROFECOXIB [Concomitant]

REACTIONS (11)
  - BLOOD DISORDER [None]
  - DRUG EFFECT DECREASED [None]
  - INFECTION [None]
  - KNEE ARTHROPLASTY [None]
  - MOUTH ULCERATION [None]
  - PAIN IN EXTREMITY [None]
  - SKIN DISCOLOURATION [None]
  - SKIN DISORDER [None]
  - SKIN EXFOLIATION [None]
  - STOMACH DISCOMFORT [None]
  - SWELLING FACE [None]
